FAERS Safety Report 19141969 (Version 3)
Quarter: 2021Q4

REPORT INFORMATION
  Report Type: Spontaneous
  Country: CH (occurrence: CH)
  Receive Date: 20210415
  Receipt Date: 20211214
  Transmission Date: 20220304
  Serious: Yes (Other)
  Sender: FDA-Public Use
  Company Number: CH-CELGENE-CHE-20210203098

PATIENT
  Age: 34 Year
  Sex: Female

DRUGS (5)
  1. ZEPOSIA [Suspect]
     Active Substance: OZANIMOD HYDROCHLORIDE
     Indication: Multiple sclerosis
     Dosage: 0.92 MILLIGRAM
     Route: 048
     Dates: start: 20201001
  2. ZEPOSIA [Suspect]
     Active Substance: OZANIMOD HYDROCHLORIDE
     Dosage: 0.92 MILLIGRAM
     Route: 048
     Dates: start: 20201201
  3. CORTISONE [Concomitant]
     Active Substance: CORTISONE
     Indication: Hypoaesthesia
     Route: 041
     Dates: start: 202009
  4. CORTISONE [Concomitant]
     Active Substance: CORTISONE
     Indication: Product used for unknown indication
     Route: 065
     Dates: start: 202012
  5. CORTISONE [Concomitant]
     Active Substance: CORTISONE
     Route: 065
     Dates: start: 2021

REACTIONS (6)
  - Optic neuritis [Recovering/Resolving]
  - Pneumonia [Recovered/Resolved]
  - Multiple sclerosis [Not Recovered/Not Resolved]
  - Chronic obstructive pulmonary disease [Recovering/Resolving]
  - Heart rate decreased [Recovered/Resolved]
  - Blood pressure increased [Recovered/Resolved]

NARRATIVE: CASE EVENT DATE: 20210101
